FAERS Safety Report 9769007 (Version 1)
Quarter: 2013Q3

REPORT INFORMATION
  Report Type: Spontaneous
  Country: ES (occurrence: None)
  Receive Date: 20130830
  Receipt Date: 20130830
  Transmission Date: 20140515
  Serious: Yes (Other)
  Sender: FDA-Public Use
  Company Number: B0891340A

PATIENT
  Age: 53 Year
  Sex: Female

DRUGS (3)
  1. RETIGABINE [Suspect]
     Indication: PARTIAL SEIZURES
     Route: 048
     Dates: start: 20070327
  2. LEVETIRACETAM [Concomitant]
  3. ESLICARBAZEPINE [Concomitant]

REACTIONS (4)
  - Pigmentation lip [None]
  - Nail pigmentation [None]
  - Retinal dystrophy [None]
  - Retinal degeneration [None]
